FAERS Safety Report 24147791 (Version 1)
Quarter: 2024Q3

REPORT INFORMATION
  Report Type: Spontaneous
  Country: GB (occurrence: GB)
  Receive Date: 20240729
  Receipt Date: 20240729
  Transmission Date: 20241016
  Serious: Yes (Other)
  Sender: ASCEND
  Company Number: GB-Ascend Therapeutics US, LLC-2159728

PATIENT
  Age: 48 Year
  Sex: Female

DRUGS (3)
  1. ESTROGEL [Suspect]
     Active Substance: ESTRADIOL
     Indication: Hormone replacement therapy
     Route: 065
     Dates: start: 20240530
  2. ESTRADIOL [Suspect]
     Active Substance: ESTRADIOL
     Route: 065
     Dates: start: 20240530
  3. RIZATRIPTAN [Concomitant]
     Active Substance: RIZATRIPTAN
     Route: 065

REACTIONS (1)
  - Application site bruise [Recovering/Resolving]

NARRATIVE: CASE EVENT DATE: 20240630
